FAERS Safety Report 6256455-3 (Version None)
Quarter: 2009Q3

REPORT INFORMATION
  Report Type: 
  Country: None (occurrence: None)
  Receive Date: 20090706
  Receipt Date: 20090626
  Transmission Date: 20100115
  Serious: Yes (Other)
  Sender: FDA-Public Use
  Company Number: CH-ABBOTT-09P-151-0582155-00

PATIENT
  Sex: Female

DRUGS (3)
  1. HUMIRA [Suspect]
     Indication: POLYARTHRITIS
     Dates: start: 20080101
  2. ANTI-HYPERTENSIVE THERAPY [Concomitant]
     Indication: DRUG USE FOR UNKNOWN INDICATION
  3. DIURETICS [Concomitant]
     Indication: DRUG USE FOR UNKNOWN INDICATION

REACTIONS (1)
  - HYPERTENSIVE CRISIS [None]
